FAERS Safety Report 7379857-0 (Version None)
Quarter: 2011Q1

REPORT INFORMATION
  Report Type: 
  Country: None (occurrence: None)
  Receive Date: 20110324
  Receipt Date: 20110324
  Transmission Date: 20110831
  Serious: Yes (Life-Threatening)
  Sender: FDA-Public Use
  Company Number: None

PATIENT
  Age: 54 Year
  Sex: 0
  Weight: 62 kg

DRUGS (1)
  1. VERAPAMIL [Suspect]
     Dosage: 240 MG TID PO
     Route: 048
     Dates: start: 20081201, end: 20110321

REACTIONS (2)
  - HYPOTENSION [None]
  - BRADYCARDIA [None]
